FAERS Safety Report 25497856 (Version 1)
Quarter: 2025Q3

REPORT INFORMATION
  Report Type: Spontaneous
  Country: JP (occurrence: JP)
  Receive Date: 20250701
  Receipt Date: 20250701
  Transmission Date: 20251021
  Serious: Yes (Other)
  Sender: GLAXOSMITHKLINE
  Company Number: JP-TAKEDA-2025TJP000352

PATIENT
  Sex: Female

DRUGS (3)
  1. ZEJULA [Suspect]
     Active Substance: NIRAPARIB
     Indication: Ovarian cancer
     Dosage: 200 MG, QD
     Dates: start: 20241205, end: 20250114
  2. ZEJULA [Suspect]
     Active Substance: NIRAPARIB
  3. ZEJULA [Suspect]
     Active Substance: NIRAPARIB

REACTIONS (1)
  - Renal impairment [Recovered/Resolved]

NARRATIVE: CASE EVENT DATE: 20241225
